FAERS Safety Report 24453299 (Version 2)
Quarter: 2024Q4

REPORT INFORMATION
  Report Type: Report from Study
  Country: US (occurrence: US)
  Receive Date: 20241017
  Receipt Date: 20241018
  Transmission Date: 20250115
  Serious: No
  Sender: ROCHE
  Company Number: US-ROCHE-3283206

PATIENT
  Age: 70 Year
  Sex: Female
  Weight: 110.22 kg

DRUGS (17)
  1. RITUXAN [Suspect]
     Active Substance: RITUXIMAB
     Indication: Rheumatoid arthritis
     Dosage: ON DAY 1 AND DAY 15 THEN EVERY 6 MONTHS. ANTICIPATED DATE OF TREATMENT: 01/MAR/2024.
     Route: 042
     Dates: start: 20210726
  2. ROSUVASTATIN [Concomitant]
     Active Substance: ROSUVASTATIN
  3. ZINC SULFATE [Concomitant]
     Active Substance: ZINC SULFATE
  4. PANTOPRAZOLE [Concomitant]
     Active Substance: PANTOPRAZOLE
  5. METOPROLOL SUCCINATE [Concomitant]
     Active Substance: METOPROLOL SUCCINATE
  6. HYDROCHLOROTHIAZIDE\LOSARTAN [Concomitant]
     Active Substance: HYDROCHLOROTHIAZIDE\LOSARTAN
  7. LORATADINE [Concomitant]
     Active Substance: LORATADINE
  8. LEVOTHYROXINE [Concomitant]
     Active Substance: LEVOTHYROXINE
  9. KETOCONAZOLE [Concomitant]
     Active Substance: KETOCONAZOLE
  10. HYDROXYCHLOROQUINE [Concomitant]
     Active Substance: HYDROXYCHLOROQUINE
  11. GLIPIZIDE [Concomitant]
     Active Substance: GLIPIZIDE
  12. FUROSEMIDE [Concomitant]
     Active Substance: FUROSEMIDE
  13. FLUTICASONE PROPIONATE [Concomitant]
     Active Substance: FLUTICASONE PROPIONATE
  14. CHOLECALCIFEROL [Concomitant]
     Active Substance: CHOLECALCIFEROL
  15. CELECOXIB [Concomitant]
     Active Substance: CELECOXIB
  16. ALBUTEROL SULFATE [Concomitant]
     Active Substance: ALBUTEROL SULFATE
  17. UPADACITINIB [Concomitant]
     Active Substance: UPADACITINIB

REACTIONS (8)
  - Throat irritation [Unknown]
  - Blood sodium decreased [Unknown]
  - Blood chloride decreased [Unknown]
  - Blood urea increased [Unknown]
  - Blood creatinine decreased [Unknown]
  - Aspartate aminotransferase increased [Unknown]
  - Blood glucose increased [Unknown]
  - Alanine aminotransferase increased [Unknown]
